FAERS Safety Report 14940294 (Version 6)
Quarter: 2019Q1

REPORT INFORMATION
  Report Type: Report from Study
  Country: BE (occurrence: BE)
  Receive Date: 20180525
  Receipt Date: 20190329
  Transmission Date: 20190417
  Serious: Yes (Hospitalization, Other)
  Sender: FDA-Public Use
  Company Number: BE-SA-2018SA139016

PATIENT
  Age: 45 Year
  Sex: Female

DRUGS (1)
  1. ALEMTUZUMAB [Suspect]
     Active Substance: ALEMTUZUMAB
     Indication: MULTIPLE SCLEROSIS
     Dosage: 12 MG
     Route: 041

REACTIONS (13)
  - Catheter site infection [Unknown]
  - Peripheral swelling [Unknown]
  - Metrorrhagia [Unknown]
  - Rectal haemorrhage [Unknown]
  - Fatigue [Unknown]
  - Urinary tract infection [Unknown]
  - Facial pain [Unknown]
  - Hiatus hernia [Recovering/Resolving]
  - Muscle spasms [Unknown]
  - Condition aggravated [Unknown]
  - Hypersomnia [Unknown]
  - Urticaria [Unknown]
  - Pain [Unknown]

NARRATIVE: CASE EVENT DATE: 20181218
